FAERS Safety Report 22304273 (Version 1)
Quarter: 2023Q2

REPORT INFORMATION
  Report Type: Spontaneous
  Country: US (occurrence: US)
  Receive Date: 20230510
  Receipt Date: 20230510
  Transmission Date: 20230721
  Serious: No
  Sender: FDA-Public Use
  Company Number: US-NEUROCRINE BIOSCIENCES INC.-2023NBI03518

PATIENT

DRUGS (3)
  1. INGREZZA [Suspect]
     Active Substance: VALBENAZINE
     Indication: Tardive dyskinesia
     Dosage: 40 MILLIGRAM,UNK
     Route: 048
     Dates: start: 202304
  2. INGREZZA [Suspect]
     Active Substance: VALBENAZINE
     Indication: Major depression
  3. INGREZZA [Suspect]
     Active Substance: VALBENAZINE
     Indication: Anxiety disorder

REACTIONS (5)
  - Memory impairment [Unknown]
  - Blood glucose increased [Unknown]
  - Therapeutic product effect incomplete [Unknown]
  - Tremor [Unknown]
  - Off label use [Unknown]
